FAERS Safety Report 17950322 (Version 3)
Quarter: 2022Q1

REPORT INFORMATION
  Report Type: Report from Study
  Country: US (occurrence: None)
  Receive Date: 20200626
  Receipt Date: 20220117
  Transmission Date: 20220424
  Serious: Yes (Other)
  Sender: FDA-Public Use
  Company Number: US-ROCHE-2449822

PATIENT
  Age: 50 Year
  Sex: Female
  Weight: 74.9 kg

DRUGS (1)
  1. ATEZOLIZUMAB [Suspect]
     Active Substance: ATEZOLIZUMAB
     Indication: Squamous cell carcinoma of the cervix
     Dosage: SUBSEQUENT DOSE: 25/MAR/2019 AND 15/APR/2019
     Route: 041
     Dates: start: 20190304

REACTIONS (1)
  - Anaemia [Unknown]
